FAERS Safety Report 7656723-4 (Version None)
Quarter: 2011Q3

REPORT INFORMATION
  Report Type: 
  Country: None (occurrence: None)
  Receive Date: 20110804
  Receipt Date: 20110728
  Transmission Date: 20111222
  Serious: Yes (Hospitalization)
  Sender: FDA-Public Use
  Company Number: US-SANOFI-AVENTIS-2011SA044364

PATIENT
  Age: 79 Year
  Sex: Male
  Weight: 118 kg

DRUGS (9)
  1. ATORVASTATIN [Concomitant]
     Route: 065
  2. ATENOLOL [Concomitant]
     Route: 065
  3. DABIGATRAN ETEXILATE [Concomitant]
  4. ASPIRIN [Concomitant]
     Route: 065
  5. ALDACTONE [Concomitant]
  6. DRONEDARONE HCL [Suspect]
     Indication: ATRIAL FIBRILLATION
     Route: 048
     Dates: start: 20110502
  7. FUROSEMIDE [Concomitant]
     Route: 065
  8. TAMSULOSIN HYDROCHLORIDE [Concomitant]
     Dosage: DOSE:1 UNIT(S)
     Route: 065
     Dates: start: 20110506
  9. SPIRIVA [Concomitant]

REACTIONS (1)
  - CARDIAC FAILURE [None]
